FAERS Safety Report 8218424 (Version 2)
Quarter: 2013Q1

REPORT INFORMATION
  Report Type: Spontaneous
  Country: US (occurrence: US)
  Receive Date: 20111101
  Receipt Date: 20130109
  Transmission Date: 20140127
  Serious: Yes (Other)
  Sender: FDA-Public Use
  Company Number: US-ROCHE-791964

PATIENT
  Sex: Female
  Weight: 122.58 kg

DRUGS (3)
  1. ACCUTANE [Suspect]
     Indication: ACNE
     Route: 065
     Dates: start: 20060627, end: 20061015
  2. ACCUTANE [Suspect]
     Indication: SEBACEOUS HYPERPLASIA
  3. AMNESTEEM [Suspect]
     Indication: ACNE
     Route: 065

REACTIONS (4)
  - Colitis ulcerative [Unknown]
  - Inflammatory bowel disease [Unknown]
  - Emotional distress [Unknown]
  - Mental disorder [Unknown]
